FAERS Safety Report 4572418-8 (Version None)
Quarter: 2005Q1

REPORT INFORMATION
  Report Type: 
  Country: None (occurrence: None)
  Receive Date: 20050207
  Receipt Date: 20041223
  Transmission Date: 20050727
  Serious: Yes (Other)
  Sender: FDA-Public Use
  Company Number: NL-GLAXOSMITHKLINE-B0363026A

PATIENT
  Age: 53 Year
  Sex: Female
  Weight: 62 kg

DRUGS (7)
  1. LAMOTRIGINE [Suspect]
     Indication: BIPOLAR I DISORDER
     Dosage: 250MG PER DAY
     Route: 065
     Dates: start: 20021216, end: 20040810
  2. LAMOTRIGINE [Suspect]
     Dosage: 200MG PER DAY
     Route: 065
     Dates: start: 20040820, end: 20050103
  3. LITHIUM [Concomitant]
     Indication: ILL-DEFINED DISORDER
     Dosage: 400MG PER DAY
     Route: 065
     Dates: start: 20020901
  4. ZOLPIDEM TARTRATE [Concomitant]
     Indication: ILL-DEFINED DISORDER
     Dosage: 20MG PER DAY
     Route: 065
     Dates: start: 19980901
  5. PROPRANOLOL [Concomitant]
     Indication: ILL-DEFINED DISORDER
     Dosage: 20MG PER DAY
     Route: 065
     Dates: start: 20040201
  6. ALPRAZOLAM [Concomitant]
     Indication: ILL-DEFINED DISORDER
     Dosage: 2MG PER DAY
     Route: 065
     Dates: start: 20010701
  7. METOCLOPRAMIDE [Concomitant]
     Indication: ILL-DEFINED DISORDER
     Dosage: 20MG PER DAY
     Route: 065
     Dates: start: 20040201

REACTIONS (2)
  - VISUAL ACUITY REDUCED [None]
  - VISUAL DISTURBANCE [None]
